FAERS Safety Report 23124866 (Version 1)
Quarter: 2023Q4

REPORT INFORMATION
  Report Type: Spontaneous
  Country: UZ (occurrence: UZ)
  Receive Date: 20231030
  Receipt Date: 20231030
  Transmission Date: 20240110
  Serious: Yes (Hospitalization)
  Sender: FDA-Public Use
  Company Number: UZ-JNJFOC-20231055096

PATIENT
  Age: 31 Year
  Sex: Female
  Weight: 45 kg

DRUGS (11)
  1. SIRTURO [Suspect]
     Active Substance: BEDAQUILINE FUMARATE
     Indication: Tuberculosis
     Dosage: 400 7/7
     Route: 048
     Dates: start: 20230921, end: 20231005
  2. SIRTURO [Suspect]
     Active Substance: BEDAQUILINE FUMARATE
     Dosage: 400 7/7
     Route: 048
     Dates: start: 20231018, end: 20231020
  3. SIRTURO [Suspect]
     Active Substance: BEDAQUILINE FUMARATE
     Dosage: 200 3/7
     Route: 048
     Dates: start: 20231020
  4. LINEZOLID [Suspect]
     Active Substance: LINEZOLID
     Indication: Tuberculosis
     Dosage: 600 7/7
     Route: 048
     Dates: start: 20230921, end: 20231005
  5. LINEZOLID [Suspect]
     Active Substance: LINEZOLID
     Dosage: 600 7/7
     Route: 048
     Dates: start: 20231011
  6. DELAMANID [Suspect]
     Active Substance: DELAMANID
     Indication: Tuberculosis
     Dosage: 200 7/7
     Route: 048
     Dates: start: 20230921, end: 20231005
  7. DELAMANID [Suspect]
     Active Substance: DELAMANID
     Dosage: 200 7/7
     Route: 048
     Dates: start: 20231011
  8. CLOFAZIMINE [Suspect]
     Active Substance: CLOFAZIMINE
     Indication: Tuberculosis
     Dosage: 100 7/7
     Route: 048
     Dates: start: 20230921, end: 20231005
  9. CLOFAZIMINE [Suspect]
     Active Substance: CLOFAZIMINE
     Dosage: 100 7/7
     Route: 048
     Dates: start: 20231011
  10. FERROUS FUMARATE [Concomitant]
     Active Substance: FERROUS FUMARATE
     Indication: Product used for unknown indication
     Dosage: 185 X 2 TIMES
     Route: 048
  11. DEXAMETHASONE [Concomitant]
     Active Substance: DEXAMETHASONE
     Indication: Product used for unknown indication
     Route: 065

REACTIONS (1)
  - Hepatitis toxic [Recovering/Resolving]

NARRATIVE: CASE EVENT DATE: 20230901
